FAERS Safety Report 8913664 (Version 1)
Quarter: 2012Q4

REPORT INFORMATION
  Report Type: Spontaneous
  Country: IL (occurrence: None)
  Receive Date: 20121113
  Receipt Date: 20121113
  Transmission Date: 20130627
  Serious: Yes (Other)
  Sender: FDA-Public Use
  Company Number: 2012-7378

PATIENT

DRUGS (1)
  1. SOMATULINE AUTOGEL [Suspect]
     Indication: DRUG USE FOR UNKNOWN INDICATION
     Dosage: not reported, unknown

REACTIONS (1)
  - Loss of consciousness [None]
